FAERS Safety Report 19276214 (Version 1)
Quarter: 2021Q2

REPORT INFORMATION
  Report Type: Spontaneous
  Country: CN (occurrence: CN)
  Receive Date: 20210519
  Receipt Date: 20210519
  Transmission Date: 20210717
  Serious: Yes (Other)
  Sender: FDA-Public Use
  Company Number: CN-EISAI MEDICAL RESEARCH-EC-2021-092817

PATIENT
  Age: 59 Year
  Sex: Male
  Weight: 110 kg

DRUGS (2)
  1. LENVIMA [Suspect]
     Active Substance: LENVATINIB
     Indication: HEPATOCELLULAR CARCINOMA
     Route: 048
     Dates: start: 20210211, end: 2021
  2. LENVIMA [Suspect]
     Active Substance: LENVATINIB
     Dosage: REDUCED UNKNOWN DOSE, FREQUENCY UNKNOWN
     Route: 048
     Dates: start: 2021, end: 20210312

REACTIONS (1)
  - Hypertension [Recovering/Resolving]

NARRATIVE: CASE EVENT DATE: 2021
